FAERS Safety Report 7644587-4 (Version None)
Quarter: 2011Q3

REPORT INFORMATION
  Report Type: 
  Country: None (occurrence: None)
  Receive Date: 20110729
  Receipt Date: 20110720
  Transmission Date: 20111222
  Serious: Yes (Other)
  Sender: FDA-Public Use
  Company Number: US-AMGEN-USASP2011037545

PATIENT
  Age: 62 Year
  Sex: Male
  Weight: 46.712 kg

DRUGS (1)
  1. PROCRIT [Suspect]
     Indication: HAEMOLYTIC ANAEMIA
     Dosage: 10000 IU, UNK
     Route: 058
     Dates: start: 19990101, end: 20110701

REACTIONS (3)
  - RENAL IMPAIRMENT [None]
  - LUPUS NEPHRITIS [None]
  - RENAL FAILURE [None]
